FAERS Safety Report 20133775 (Version 2)
Quarter: 2021Q4

REPORT INFORMATION
  Report Type: Report from Study
  Country: BR (occurrence: BR)
  Receive Date: 20211201
  Receipt Date: 20211227
  Transmission Date: 20220303
  Serious: Yes (Other)
  Sender: FDA-Public Use
  Company Number: BR-JNJFOC-20211156014

PATIENT
  Age: 36 Year
  Sex: Male
  Weight: 100 kg

DRUGS (2)
  1. REMICADE [Suspect]
     Active Substance: INFLIXIMAB
     Indication: Ankylosing spondylitis
     Route: 042
     Dates: start: 20170828
  2. REMICADE [Suspect]
     Active Substance: INFLIXIMAB
     Dosage: 7 VIALS, DOSE 700 ML DILUTED IN 500 ML SERUM
     Route: 042
     Dates: end: 2021

REACTIONS (3)
  - Sepsis [Unknown]
  - Decreased immune responsiveness [Unknown]
  - Therapeutic product effect decreased [Unknown]
